FAERS Safety Report 12047962 (Version 3)
Quarter: 2016Q3

REPORT INFORMATION
  Report Type: Spontaneous
  Country: US (occurrence: US)
  Receive Date: 20160208
  Receipt Date: 20160803
  Transmission Date: 20161109
  Serious: Yes (Other)
  Sender: FDA-Public Use
  Company Number: US-BAYER-2016-022099

PATIENT
  Sex: Male
  Weight: 76.19 kg

DRUGS (3)
  1. LEVAQUIN [Suspect]
     Active Substance: LEVOFLOXACIN
     Dosage: UNK
  2. AVELOX [Suspect]
     Active Substance: MOXIFLOXACIN HYDROCHLORIDE
     Indication: SINUSITIS
     Dosage: 400 MG, QD
     Dates: start: 20101213
  3. CIPRO [Suspect]
     Active Substance: CIPROFLOXACIN HYDROCHLORIDE
     Dosage: UNK

REACTIONS (12)
  - Paraesthesia [None]
  - Hypoaesthesia [None]
  - Anxiety [None]
  - Musculoskeletal injury [None]
  - Palpitations [None]
  - Mental disorder [None]
  - Pain [None]
  - Neuropathy peripheral [None]
  - Nervous system disorder [None]
  - Skin injury [None]
  - Cardiovascular disorder [None]
  - Burning sensation [None]
